FAERS Safety Report 14374558 (Version 2)
Quarter: 2018Q2

REPORT INFORMATION
  Report Type: Spontaneous
  Country: FR (occurrence: FR)
  Receive Date: 20180111
  Receipt Date: 20180604
  Transmission Date: 20180711
  Serious: Yes (Life-Threatening, Hospitalization, Other)
  Sender: FDA-Public Use
  Company Number: FR-ACCORD-062705

PATIENT

DRUGS (6)
  1. DEPAKOTE [Concomitant]
     Active Substance: DIVALPROEX SODIUM
  2. VALIUM [Concomitant]
     Active Substance: DIAZEPAM
  3. VENLAFAXINE/VENLAFAXINE HYDROCHLORIDE [Concomitant]
  4. ARIPIPRAZOLE. [Suspect]
     Active Substance: ARIPIPRAZOLE
     Route: 048
  5. QUETIAPINE. [Suspect]
     Active Substance: QUETIAPINE
     Route: 048
  6. XEROQUEL LP [Suspect]
     Active Substance: QUETIAPINE FUMARATE
     Route: 048

REACTIONS (4)
  - Intentional overdose [Unknown]
  - Coma [Recovered/Resolved]
  - Suicide attempt [Unknown]
  - Prothrombin level decreased [Recovered/Resolved]

NARRATIVE: CASE EVENT DATE: 201504
